FAERS Safety Report 7660005-4 (Version None)
Quarter: 2011Q3

REPORT INFORMATION
  Report Type: 
  Country: None (occurrence: None)
  Receive Date: 20110805
  Receipt Date: 20110801
  Transmission Date: 20111222
  Serious: Yes (Hospitalization)
  Sender: FDA-Public Use
  Company Number: FR-BRISTOL-MYERS SQUIBB COMPANY-15628936

PATIENT
  Age: 60 Year
  Sex: Female
  Weight: 78 kg

DRUGS (7)
  1. ACTONEL [Suspect]
     Dosage: 1 DF: 1 TAB 35 MG
     Route: 048
     Dates: start: 20101119
  2. SULFARLEM [Concomitant]
     Route: 048
     Dates: start: 20100521, end: 20101027
  3. ABILIFY [Suspect]
     Indication: BIPOLAR I DISORDER
     Route: 048
     Dates: start: 20100521, end: 20101001
  4. PAROXETINE HCL [Suspect]
     Indication: BIPOLAR I DISORDER
     Dosage: 1DF=1 TAB,DEROXAT 20 MG (PAROXETINE)
     Route: 048
     Dates: end: 20101105
  5. TRIMEPRAZINE TARTRATE [Concomitant]
     Route: 048
  6. DEPAKOTE [Suspect]
     Indication: BIPOLAR I DISORDER
     Route: 048
     Dates: start: 20050101
  7. NOCTAMIDE [Concomitant]
     Dosage: 1DF=0.5 UNITS NOT SPECIFIED.NOCTAMIDE 1 MG.
     Route: 048

REACTIONS (4)
  - RENAL FAILURE ACUTE [None]
  - RENAL TUBULAR DISORDER [None]
  - UVEITIS [None]
  - TUBULOINTERSTITIAL NEPHRITIS AND UVEITIS SYNDROME [None]
